FAERS Safety Report 6307914-6 (Version None)
Quarter: 2009Q3

REPORT INFORMATION
  Report Type: 
  Country: None (occurrence: None)
  Receive Date: 20090810
  Receipt Date: 20090727
  Transmission Date: 20100115
  Serious: Yes (Hospitalization)
  Sender: FDA-Public Use
  Company Number: US-1170440

PATIENT
  Age: 93 Year
  Sex: Female

DRUGS (2)
  1. TOBRADEX [Suspect]
     Indication: CORNEAL ABRASION
     Dosage: (1/2 INCH APPLIED TO AFFECTED EYE BID OPHTHALMIC)
     Route: 047
     Dates: start: 20090701, end: 20090701
  2. PREVACID [Concomitant]

REACTIONS (12)
  - ASPIRATION [None]
  - CARDIOMEGALY [None]
  - DECREASED ACTIVITY [None]
  - DEHYDRATION [None]
  - DEMENTIA [None]
  - DISEASE PROGRESSION [None]
  - DYSPHAGIA [None]
  - GOITRE [None]
  - LUNG NEOPLASM MALIGNANT [None]
  - SKIN INFECTION [None]
  - SOMNOLENCE [None]
  - URINARY TRACT INFECTION [None]
